FAERS Safety Report 22315399 (Version 11)
Quarter: 2025Q4

REPORT INFORMATION
  Report Type: Spontaneous
  Country: US (occurrence: US)
  Receive Date: 20230512
  Receipt Date: 20251125
  Transmission Date: 20260118
  Serious: No
  Sender: PFIZER
  Company Number: US-PFIZER INC-202300185130

PATIENT
  Age: 68 Year
  Sex: Female
  Weight: 72.57 kg

DRUGS (3)
  1. EUCRISA [Suspect]
     Active Substance: CRISABOROLE
     Indication: Dyshidrotic eczema
     Dosage: UNK, 1X/DAY
     Dates: start: 20210504
  2. EUCRISA [Suspect]
     Active Substance: CRISABOROLE
     Indication: Dermatitis infected
     Dosage: 1 G, 2X/DAY
     Route: 061
     Dates: start: 202212
  3. PREDNISONE [Concomitant]
     Active Substance: PREDNISONE
     Indication: Dyshidrotic eczema
     Dosage: 5 MG
     Dates: start: 2021

REACTIONS (9)
  - Blister [Unknown]
  - Skin exfoliation [Unknown]
  - Condition aggravated [Unknown]
  - Burning sensation [Recovering/Resolving]
  - Peripheral swelling [Unknown]
  - Gait inability [Unknown]
  - Intentional product misuse [Unknown]
  - Off label use [Unknown]
  - Drug ineffective for unapproved indication [Unknown]

NARRATIVE: CASE EVENT DATE: 20210504
